FAERS Safety Report 9801506 (Version 1)
Quarter: 2014Q1

REPORT INFORMATION
  Report Type: Spontaneous
  Country: US (occurrence: US)
  Receive Date: 20140107
  Receipt Date: 20140107
  Transmission Date: 20141002
  Serious: No
  Sender: FDA-Public Use
  Company Number: US-GILEAD-US-CVT-100494

PATIENT
  Sex: Male

DRUGS (3)
  1. RANEXA [Suspect]
     Indication: ANGINA PECTORIS
     Dates: start: 20100623, end: 20100715
  2. PLAVIX [Suspect]
     Indication: CORONARY ARTERY BYPASS
  3. BABY ASPIRIN [Suspect]
     Indication: CORONARY ARTERY BYPASS

REACTIONS (1)
  - Abdominal pain upper [Unknown]
